FAERS Safety Report 7485637-8 (Version None)
Quarter: 2011Q2

REPORT INFORMATION
  Report Type: 
  Country: None (occurrence: None)
  Receive Date: 20110509
  Receipt Date: 20110428
  Transmission Date: 20111010
  Serious: Yes (Hospitalization)
  Sender: FDA-Public Use
  Company Number: 2011SP019566

PATIENT
  Age: 17 Year
  Sex: Female

DRUGS (2)
  1. PROZAC [Concomitant]
  2. SAPHRIS [Suspect]
     Indication: BIPOLAR DISORDER
     Dosage: 5 MG;HS;
     Dates: start: 20110401

REACTIONS (1)
  - SUICIDAL IDEATION [None]
